FAERS Safety Report 5283230-9 (Version None)
Quarter: 2007Q2

REPORT INFORMATION
  Report Type: 
  Country: None (occurrence: None)
  Receive Date: 20070402
  Receipt Date: 20070329
  Transmission Date: 20071010
  Serious: Yes (Other)
  Sender: FDA-Public Use
  Company Number: JP-JPN-A200701378

PATIENT
  Sex: Female

DRUGS (8)
  1. PAXIL [Suspect]
     Indication: DEPRESSION
     Route: 048
     Dates: start: 20070127, end: 20070321
  2. AMOXAN [Suspect]
     Indication: DRUG USE FOR UNKNOWN INDICATION
     Dosage: 50MG PER DAY
     Route: 048
     Dates: start: 20070312
  3. PERORIC [Concomitant]
     Route: 048
  4. TERPENONE [Concomitant]
     Route: 048
  5. SHINLUCK [Concomitant]
     Route: 048
  6. MEDEPOLIN [Concomitant]
     Route: 048
  7. ROHYPNOL [Concomitant]
     Route: 065
  8. EURODIN [Concomitant]
     Route: 048

REACTIONS (1)
  - SELF INJURIOUS BEHAVIOUR [None]
